FAERS Safety Report 7296836-2 (Version None)
Quarter: 2011Q1

REPORT INFORMATION
  Report Type: 
  Country: None (occurrence: None)
  Receive Date: 20110216
  Receipt Date: 20110208
  Transmission Date: 20110831
  Serious: Yes (Hospitalization)
  Sender: FDA-Public Use
  Company Number: US-JNJFOC-20100510914

PATIENT
  Sex: Female
  Weight: 59.88 kg

DRUGS (3)
  1. UNKNOWN MEDICATION [Suspect]
     Indication: PARKINSON'S DISEASE
  2. TYLENOL-500 [Suspect]
     Route: 048
  3. TYLENOL-500 [Suspect]
     Indication: ARTHRITIS
     Route: 048

REACTIONS (3)
  - LARGE INTESTINE PERFORATION [None]
  - PRODUCT QUALITY ISSUE [None]
  - DIARRHOEA [None]
